FAERS Safety Report 6196901-7 (Version None)
Quarter: 2009Q2

REPORT INFORMATION
  Report Type: 
  Country: None (occurrence: None)
  Receive Date: 20090520
  Receipt Date: 20090518
  Transmission Date: 20091009
  Serious: Yes (Death, Hospitalization)
  Sender: FDA-Public Use
  Company Number: KR-WYE-H09249009

PATIENT
  Sex: Male
  Weight: 73.4 kg

DRUGS (10)
  1. TEMSIROLIMUS [Suspect]
     Indication: RENAL CELL CARCINOMA
     Route: 042
     Dates: start: 20090219, end: 20090402
  2. SUNITINIB MALATE [Concomitant]
     Dosage: NOT PROVIDED
     Route: 065
     Dates: start: 20090401
  3. OXYCODONE HYDROCHLORIDE [Concomitant]
     Indication: FLANK PAIN
     Dosage: NOT PROVIDED
     Route: 065
     Dates: start: 20090213, end: 20090429
  4. MORPHINE [Concomitant]
     Indication: ABDOMINAL PAIN
     Dosage: NOT PROVIDED
     Route: 065
     Dates: start: 20090430, end: 20090504
  5. BENZYDAMINE HYDROCHLORIDE [Concomitant]
     Indication: PROPHYLAXIS
     Dosage: NOT PROVIDED
     Route: 065
     Dates: start: 20090219, end: 20090427
  6. MAGNESIUM OXIDE [Concomitant]
     Indication: CONSTIPATION
     Dosage: NOT PROVIDED
     Route: 065
     Dates: start: 20090306, end: 20090429
  7. MUPIROCIN [Concomitant]
     Indication: DECUBITUS ULCER
     Dosage: NOT PROVIDED
     Route: 065
     Dates: start: 20090320, end: 20090505
  8. FENTANYL [Concomitant]
     Indication: FLANK PAIN
     Dosage: NOT PROVIDED
     Route: 065
     Dates: start: 20090403, end: 20090403
  9. BEVACIZUMAB [Concomitant]
     Indication: RENAL CELL CARCINOMA
     Route: 042
     Dates: start: 20090219, end: 20090402
  10. POVIDONE IODINE [Concomitant]
     Indication: PROPHYLAXIS
     Dosage: NOT PROVIDED
     Route: 065
     Dates: start: 20090219, end: 20090427

REACTIONS (2)
  - LARGE INTESTINE PERFORATION [None]
  - PERITONITIS [None]
